FAERS Safety Report 10622979 (Version 2)
Quarter: 2014Q4

REPORT INFORMATION
  Report Type: Spontaneous
  Country: JP (occurrence: JP)
  Receive Date: 20141203
  Receipt Date: 20141203
  Transmission Date: 20150529
  Serious: Yes (Death)
  Sender: FDA-Public Use
  Company Number: JP-PFIZER INC-2014311570

PATIENT
  Age: 82 Year
  Sex: Male

DRUGS (6)
  1. SENNOSIDE [Concomitant]
     Active Substance: SENNOSIDES
     Dosage: 36 MG, DAILY
     Route: 048
  2. MAGMITT [Concomitant]
     Active Substance: MAGNESIUM OXIDE
     Dosage: 1500 MG, DAILY
     Route: 048
  3. HYPEN [Concomitant]
     Active Substance: ETODOLAC
     Dosage: 400 MG, DAILY
     Route: 048
  4. DUROTEP [Concomitant]
     Active Substance: FENTANYL
     Dosage: 6.3 MG, DAILY
     Route: 062
  5. LYRICA [Suspect]
     Active Substance: PREGABALIN
     Dosage: 50 MG, DAILY
     Route: 048
     Dates: start: 20141107, end: 20141112
  6. OMEPRAL [Concomitant]
     Active Substance: OMEPRAZOLE
     Dosage: 20 MG, DAILY
     Route: 048

REACTIONS (2)
  - Malignant neoplasm progression [Fatal]
  - Thirst [Unknown]

NARRATIVE: CASE EVENT DATE: 20141110
